FAERS Safety Report 11953755 (Version 1)
Quarter: 2016Q1

REPORT INFORMATION
  Report Type: Spontaneous
  Country: SE (occurrence: SE)
  Receive Date: 20160126
  Receipt Date: 20160126
  Transmission Date: 20160526
  Serious: Yes (Hospitalization)
  Sender: FDA-Public Use
  Company Number: SE-ABBVIE-16P-150-1544767-00

PATIENT
  Age: 14 Year
  Sex: Female

DRUGS (2)
  1. ERGENYL [Suspect]
     Active Substance: VALPROIC ACID
     Indication: EPILEPSY
     Route: 048
     Dates: start: 2005
  2. LAMOTRIGINE. [Suspect]
     Active Substance: LAMOTRIGINE
     Indication: EPILEPSY
     Route: 048
     Dates: start: 2005

REACTIONS (1)
  - Gingival hyperplasia [Recovered/Resolved]
